FAERS Safety Report 10205115 (Version 1)
Quarter: 2014Q2

REPORT INFORMATION
  Report Type: Spontaneous
  Country: US (occurrence: US)
  Receive Date: 20140529
  Receipt Date: 20140529
  Transmission Date: 20141212
  Serious: No
  Sender: FDA-Public Use
  Company Number: US-009507513-1405USA012125

PATIENT
  Age: 8 Year
  Sex: Female
  Weight: 27.21 kg

DRUGS (1)
  1. CLARITIN ORAL SOLUTION [Suspect]
     Indication: HYPERSENSITIVITY
     Dosage: THREE DOSES AT 5 ML EACH IN 24 HOURS
     Route: 048

REACTIONS (1)
  - Overdose [Unknown]
